FAERS Safety Report 11815291 (Version 1)
Quarter: 2015Q4

REPORT INFORMATION
  Report Type: Report from Study
  Country: US (occurrence: US)
  Receive Date: 20151209
  Receipt Date: 20151209
  Transmission Date: 20160305
  Serious: No
  Sender: FDA-Public Use
  Company Number: US-CELGENEUS-USA-2015110213

PATIENT

DRUGS (2)
  1. DEXAMETHASONE. [Suspect]
     Active Substance: DEXAMETHASONE
     Indication: PLASMA CELL MYELOMA
     Route: 065
  2. REVLIMID [Suspect]
     Active Substance: LENALIDOMIDE
     Indication: PLASMA CELL MYELOMA
     Route: 048

REACTIONS (12)
  - Somnolence [Unknown]
  - Tremor [Unknown]
  - Unevaluable event [Unknown]
  - Fatigue [Unknown]
  - Confusional state [Unknown]
  - Appetite disorder [Unknown]
  - Dyspepsia [Unknown]
  - Insomnia [Unknown]
  - Sleep disorder [Unknown]
  - Dry skin [Unknown]
  - Emotional distress [Unknown]
  - Pain [Unknown]
